FAERS Safety Report 4291396-2 (Version None)
Quarter: 2004Q1

REPORT INFORMATION
  Report Type: 
  Country: None (occurrence: None)
  Receive Date: 20040211
  Receipt Date: 20030313
  Transmission Date: 20041129
  Serious: No
  Sender: FDA-Public Use
  Company Number: US-BRISTOL-MYERS SQUIBB COMPANY-12214698

PATIENT

DRUGS (2)
  1. CEFZIL [Suspect]
     Indication: PNEUMONIA
  2. CEFZIL [Suspect]
     Indication: LOWER RESPIRATORY TRACT INFECTION

REACTIONS (1)
  - OTITIS MEDIA [None]
